FAERS Safety Report 11151929 (Version 2)
Quarter: 2015Q2

REPORT INFORMATION
  Report Type: Spontaneous
  Country: CA (occurrence: CA)
  Receive Date: 20150601
  Receipt Date: 20150605
  Transmission Date: 20150821
  Serious: Yes (Other)
  Sender: FDA-Public Use
  Company Number: CA-PFIZER INC-2015178522

PATIENT
  Age: 13 Year
  Sex: Male

DRUGS (3)
  1. XYNTHA [Suspect]
     Active Substance: ANTIHEMOPHILIC FACTOR, HUMAN RECOMBINANT RESIDUES 743-1636 DELETED
     Indication: FACTOR VIII DEFICIENCY
     Dosage: 1050 IU, UNK
     Route: 042
     Dates: start: 20121106
  2. TYLENOL [Concomitant]
     Active Substance: ACETAMINOPHEN
     Dosage: UNK, AS NEEDED
  3. METHYLPHENIDATE [Concomitant]
     Active Substance: METHYLPHENIDATE
     Dosage: UNK

REACTIONS (3)
  - Haemorrhage [Recovered/Resolved]
  - Limb injury [Recovering/Resolving]
  - Skin wound [Recovering/Resolving]

NARRATIVE: CASE EVENT DATE: 20150521
